FAERS Safety Report 25158808 (Version 2)
Quarter: 2025Q4

REPORT INFORMATION
  Report Type: Report from Study
  Country: GB (occurrence: GB)
  Receive Date: 20250404
  Receipt Date: 20251112
  Transmission Date: 20260117
  Serious: Yes (Hospitalization)
  Sender: SANDOZ
  Company Number: GB-002147023-NVSC2021GB203773

PATIENT
  Sex: Female

DRUGS (3)
  1. OMNITROPE [Suspect]
     Active Substance: SOMATROPIN
     Indication: Small for dates baby
     Dosage: 0.8 MG, QD (CARTIDGES)
     Route: 058
     Dates: start: 20191002
  2. OMNITROPE [Suspect]
     Active Substance: SOMATROPIN
     Dosage: 1.1 MG, QD
     Route: 058
  3. OMNITROPE [Suspect]
     Active Substance: SOMATROPIN
     Dosage: 10 MG INJECT 1.2MG SUBCUTANEOUSLY DAILY AS DIRECTED.
     Route: 058
     Dates: start: 20191006

REACTIONS (6)
  - Asthma [Unknown]
  - Injection site pain [Unknown]
  - Injection site mass [Unknown]
  - Product temperature excursion issue [Unknown]
  - Product dose omission issue [Unknown]
  - Wrong technique in product usage process [Unknown]
